FAERS Safety Report 13942018 (Version 1)
Quarter: 2017Q3

REPORT INFORMATION
  Report Type: Spontaneous
  Country: US (occurrence: US)
  Receive Date: 20170907
  Receipt Date: 20170907
  Transmission Date: 20171127
  Serious: No
  Sender: FDA-Public Use
  Company Number: US-009507513-1709USA002018

PATIENT
  Age: 30 Year
  Sex: Female
  Weight: 58.96 kg

DRUGS (1)
  1. NEXPLANON [Suspect]
     Active Substance: ETONOGESTREL
     Indication: CONTRACEPTION
     Dosage: ONE ROD/ 3 YEARS
     Route: 059
     Dates: start: 201703

REACTIONS (2)
  - Menstrual disorder [Not Recovered/Not Resolved]
  - Menstrual disorder [Recovered/Resolved]

NARRATIVE: CASE EVENT DATE: 2017
